FAERS Safety Report 18502342 (Version 1)
Quarter: 2020Q4

REPORT INFORMATION
  Report Type: Other
  Country: US (occurrence: US)
  Receive Date: 20201113
  Receipt Date: 20201113
  Transmission Date: 20210114
  Serious: No
  Sender: FDA-Public Use
  Company Number: US-LEADIANT BIOSCIENCES INC-2020STPI000226

PATIENT
  Sex: Male

DRUGS (3)
  1. CYSTARAN [Suspect]
     Active Substance: CYSTEAMINE HYDROCHLORIDE
     Indication: CYSTINOSIS
     Dosage: ONE DROP EVERY HOUR  WHEN AWAKE
     Route: 047
     Dates: start: 20191217
  2. AMLODIPINE [Concomitant]
     Active Substance: AMLODIPINE BESYLATE
  3. PROCYSBI [Concomitant]
     Active Substance: CYSTEAMINE BITARTRATE

REACTIONS (1)
  - Eye irritation [Unknown]
